FAERS Safety Report 6170432-2 (Version None)
Quarter: 2009Q2

REPORT INFORMATION
  Report Type: 
  Country: None (occurrence: None)
  Receive Date: 20090427
  Receipt Date: 20090427
  Transmission Date: 20091009
  Serious: Yes (Life-Threatening, Hospitalization)
  Sender: FDA-Public Use
  Company Number: None

PATIENT
  Sex: Male
  Weight: 104 kg

DRUGS (3)
  1. OXALIPLATIN [Suspect]
     Indication: COLORECTAL CANCER
     Dosage: 85MG/M2  Q 14 DAYS IV
     Route: 042
  2. BEVACIZUMAB [Suspect]
     Indication: COLORECTAL CANCER
     Dosage: 5MG/MW Q 14 DAYS IV
     Route: 042
  3. CAPECITABINE [Suspect]
     Indication: COLORECTAL CANCER
     Dosage: 750MG/M2 BID Q DAY PO
     Route: 048

REACTIONS (4)
  - CONSTIPATION [None]
  - LARGE INTESTINAL OBSTRUCTION [None]
  - LARGE INTESTINE PERFORATION [None]
  - PERITONITIS [None]
